FAERS Safety Report 21147174 (Version 1)
Quarter: 2022Q3

REPORT INFORMATION
  Report Type: Spontaneous
  Country: US (occurrence: US)
  Receive Date: 20220729
  Receipt Date: 20220729
  Transmission Date: 20221026
  Serious: Yes (Life-Threatening, Hospitalization)
  Sender: FDA-Public Use
  Company Number: US-drreddys-LIT/USA/22/0152821

PATIENT
  Age: 5 Month
  Sex: Male

DRUGS (4)
  1. PYRIDOXINE HYDROCHLORIDE [Suspect]
     Active Substance: PYRIDOXINE HYDROCHLORIDE
     Indication: Infantile spasms
     Route: 042
  2. PREDNISOLONE [Suspect]
     Active Substance: PREDNISOLONE
     Indication: Infantile spasms
     Dosage: HIGH-DOSE
  3. ARGININE [Suspect]
     Active Substance: ARGININE
     Indication: Infantile spasms
  4. LYSINE [Suspect]
     Active Substance: LYSINE
     Indication: Infantile spasms

REACTIONS (1)
  - Drug ineffective [Unknown]
